FAERS Safety Report 6993869-8 (Version None)
Quarter: 2010Q3

REPORT INFORMATION
  Report Type: 
  Country: None (occurrence: None)
  Receive Date: 20100917
  Receipt Date: 20100311
  Transmission Date: 20110219
  Serious: Yes (Other)
  Sender: FDA-Public Use
  Company Number: US-ASTRAZENECA-2009UW20832

PATIENT
  Age: 39 Year
  Sex: Male
  Weight: 93 kg

DRUGS (4)
  1. SEROQUEL [Suspect]
     Indication: BIPOLAR DISORDER
     Dosage: 100-300 MG
     Route: 048
     Dates: start: 20020101, end: 20060101
  2. AMITRIPTYLINE HCL [Concomitant]
     Indication: BIPOLAR DISORDER
  3. TRAZODONE HCL [Concomitant]
     Indication: DEPRESSION
  4. PAXIL [Concomitant]

REACTIONS (11)
  - BLOOD CHOLESTEROL INCREASED [None]
  - CHOLELITHIASIS [None]
  - CORONARY ARTERY DISEASE [None]
  - HEPATITIS C [None]
  - HYPERLIPIDAEMIA [None]
  - INJURY [None]
  - KETOACIDOSIS [None]
  - OBESITY [None]
  - PANCREATITIS [None]
  - TARDIVE DYSKINESIA [None]
  - TYPE 2 DIABETES MELLITUS [None]
